FAERS Safety Report 20233194 (Version 2)
Quarter: 2022Q1

REPORT INFORMATION
  Report Type: Report from Study
  Country: BR (occurrence: BR)
  Receive Date: 20211227
  Receipt Date: 20220125
  Transmission Date: 20220423
  Serious: Yes (Other)
  Sender: FDA-Public Use
  Company Number: BR-NOVARTISPH-NVSC2021BR289414

PATIENT
  Sex: Male

DRUGS (3)
  1. AMLODIPINE\VALSARTAN [Suspect]
     Active Substance: AMLODIPINE\VALSARTAN
     Indication: Product used for unknown indication
     Dosage: UNK QD (STARTED MORE THAN 05 YEARS AGO, 320/10)
     Route: 065
  2. AMLODIPINE\VALSARTAN [Suspect]
     Active Substance: AMLODIPINE\VALSARTAN
     Dosage: UNK, BID (160/5 MG)
     Route: 065
     Dates: start: 2021
  3. DIOVAN [Suspect]
     Active Substance: VALSARTAN
     Indication: Product used for unknown indication
     Dosage: UNK (STARTED MORE THAN 10 YEARS AGO)
     Route: 065

REACTIONS (5)
  - Drug dependence [Not Recovered/Not Resolved]
  - Speech disorder [Unknown]
  - Anxiety [Unknown]
  - COVID-19 [Unknown]
  - Product availability issue [Unknown]

NARRATIVE: CASE EVENT DATE: 20200101
